FAERS Safety Report 16310011 (Version 1)
Quarter: 2019Q2

REPORT INFORMATION
  Report Type: Spontaneous
  Country: CN (occurrence: CN)
  Receive Date: 20190514
  Receipt Date: 20190514
  Transmission Date: 20190711
  Serious: Yes (Other)
  Sender: FDA-Public Use
  Company Number: CN-PFIZER INC-2019197488

PATIENT
  Age: 69 Year
  Sex: Male
  Weight: 60 kg

DRUGS (2)
  1. METHYLPREDNISOLONE SODIUM SUCCINATE. [Suspect]
     Active Substance: METHYLPREDNISOLONE SODIUM SUCCINATE
     Indication: DYSPNOEA
     Dosage: 40 MG, UNK
     Route: 041
     Dates: start: 20190423
  2. SODIUM CHLORIDE. [Concomitant]
     Active Substance: SODIUM CHLORIDE
     Indication: VEHICLE SOLUTION USE
     Dosage: 100 ML, UNK
     Route: 041
     Dates: start: 20190423

REACTIONS (4)
  - Drug ineffective [Unknown]
  - Cyanosis [Unknown]
  - Hypokinesia [Unknown]
  - Indifference [Unknown]

NARRATIVE: CASE EVENT DATE: 20190423
